FAERS Safety Report 6289251-1 (Version None)
Quarter: 2009Q3

REPORT INFORMATION
  Report Type: 
  Country: None (occurrence: None)
  Receive Date: 20090729
  Receipt Date: 20090717
  Transmission Date: 20100115
  Serious: Yes (Hospitalization, Other)
  Sender: FDA-Public Use
  Company Number: US-TYCO HEALTHCARE/MALLINCKRODT-T200801018

PATIENT

DRUGS (17)
  1. OPTIMARK [Suspect]
     Indication: NUCLEAR MAGNETIC RESONANCE IMAGING BRAIN
     Dosage: UNK, SINGLE
     Dates: start: 20011118, end: 20011118
  2. OPTIMARK [Suspect]
     Indication: ANGIOGRAM
  3. OMNISCAN [Suspect]
     Indication: NUCLEAR MAGNETIC RESONANCE IMAGING BRAIN
     Dosage: UNK, SINGLE
     Dates: start: 19980611, end: 19980611
  4. OMNISCAN [Suspect]
     Dosage: UNK, SINGLE
     Dates: start: 20080627, end: 20080627
  5. PROGRAF [Concomitant]
     Indication: PROPHYLAXIS AGAINST TRANSPLANT REJECTION
     Dosage: 4 MG, BID
     Dates: start: 20020101
  6. MYFORTIC                           /01275101/ [Concomitant]
     Indication: PROPHYLAXIS AGAINST TRANSPLANT REJECTION
     Dosage: 180 MG, QID
     Dates: start: 20050101
  7. PREDNISONE                         /00044702/ [Concomitant]
     Indication: TRANSPLANT
     Dosage: 5 MG, QD
     Dates: start: 20020101
  8. BACTRIM [Concomitant]
     Indication: TRANSPLANT
     Dosage: 400/80 MG, QD
     Dates: start: 20020101
  9. DIGOXIN [Concomitant]
     Indication: CARDIAC DISORDER
     Dosage: .125MGL/5 MG, BID
     Dates: start: 20080101
  10. METOPROLOL TARTRATE [Concomitant]
     Indication: CARDIAC DISORDER
     Dosage: 5 MG, BID
     Dates: start: 20080101
  11. WARFARIN POTASSIUM [Concomitant]
     Indication: CARDIAC DISORDER
     Dosage: 5 MG, QD
     Dates: start: 20070101
  12. POTASSIUM CHLORIDE [Concomitant]
     Indication: DRUG USE FOR UNKNOWN INDICATION
     Dosage: 10 MEQ, QID
  13. MAGNESIUM [Concomitant]
     Indication: DRUG USE FOR UNKNOWN INDICATION
     Dosage: 400 MG, QD
  14. LASIX [Concomitant]
     Indication: OEDEMA
     Dosage: 80 MG, BID
  15. AROXOLYN [Concomitant]
     Indication: OEDEMA
     Dosage: 2.5 MG, PRN
  16. MULTIVITAMIN                       /00831701/ [Concomitant]
     Indication: DRUG USE FOR UNKNOWN INDICATION
     Dosage: UNK, UNK
     Dates: start: 20080101
  17. EPOGEN [Concomitant]

REACTIONS (10)
  - ARTHRITIS [None]
  - BACK PAIN [None]
  - CHEST PAIN [None]
  - DIABETES MELLITUS [None]
  - GOUT [None]
  - HYPOTENSION [None]
  - INFECTION [None]
  - NEPHROGENIC SYSTEMIC FIBROSIS [None]
  - OFF LABEL USE [None]
  - PAIN IN EXTREMITY [None]
